FAERS Safety Report 12536881 (Version 1)
Quarter: 2016Q3

REPORT INFORMATION
  Report Type: Spontaneous
  Country: PL (occurrence: PL)
  Receive Date: 20160707
  Receipt Date: 20160707
  Transmission Date: 20161109
  Serious: Yes (Other)
  Sender: FDA-Public Use
  Company Number: PL-JNJFOC-20160701857

PATIENT
  Sex: Female

DRUGS (8)
  1. MILURIT [Concomitant]
     Active Substance: ALLOPURINOL
     Route: 065
  2. XARELTO [Suspect]
     Active Substance: RIVAROXABAN
     Indication: PRODUCT USED FOR UNKNOWN INDICATION
     Route: 048
  3. LOKREN [Concomitant]
     Active Substance: BETAXOLOL HYDROCHLORIDE
     Route: 065
  4. PLAVIX [Concomitant]
     Active Substance: CLOPIDOGREL BISULFATE
     Route: 065
  5. DIUVER [Concomitant]
     Active Substance: TORSEMIDE
     Route: 065
  6. ATACAND [Concomitant]
     Active Substance: CANDESARTAN CILEXETIL
     Indication: MYOCARDIAL ISCHAEMIA
     Route: 048
  7. ATORVASTATIN [Concomitant]
     Active Substance: ATORVASTATIN
     Route: 065
  8. OXYBUTYNIN [Concomitant]
     Active Substance: OXYBUTYNIN
     Route: 065

REACTIONS (3)
  - Asthenia [Recovered/Resolved]
  - Angina pectoris [Recovered/Resolved]
  - Blood pressure decreased [Recovered/Resolved]
